FAERS Safety Report 7104596-0 (Version None)
Quarter: 2010Q4

REPORT INFORMATION
  Report Type: 
  Country: None (occurrence: None)
  Receive Date: 20101108
  Receipt Date: 20101026
  Transmission Date: 20110411
  Serious: Yes (Hospitalization)
  Sender: FDA-Public Use
  Company Number: ZYD-10-AE-260

PATIENT
  Age: 79 Year
  Sex: Male

DRUGS (15)
  1. AMIODARONE [Suspect]
     Indication: TACHYARRHYTHMIA
     Dosage: 200MG - QD - ORAL
     Route: 048
     Dates: start: 20060101
  2. MASKED THERAPY: VEGF TRAP-EYE/RANIBIZUMAB [Suspect]
     Dosage: Q4HRS-INTRAVITREAL
     Dates: start: 20090819
  3. DIGOXIN [Suspect]
     Indication: TACHYCARDIA
     Dosage: 0.125MG - QD - ORAL
     Route: 048
     Dates: start: 20060101
  4. LIPITOR [Concomitant]
  5. TEMAZEPAM [Concomitant]
  6. ALLOPURINOL [Concomitant]
  7. WARFARIN SODIUM [Concomitant]
  8. CENTRUM SILVER VITAMINS [Concomitant]
  9. VITAMIN E [Concomitant]
  10. FOLIC ACID [Concomitant]
  11. ASCORBIC ACID [Concomitant]
  12. MICARDIS [Concomitant]
  13. NIFEDIPINE [Concomitant]
  14. QUINARECTIC [Concomitant]
  15. INDOMETHACIN [Concomitant]

REACTIONS (13)
  - ACTIVATED PARTIAL THROMBOPLASTIN TIME PROLONGED [None]
  - ANTIBIOTIC RESISTANT STAPHYLOCOCCUS TEST POSITIVE [None]
  - ATRIAL FIBRILLATION [None]
  - BLOOD CALCIUM DECREASED [None]
  - BRADYCARDIA [None]
  - BUNDLE BRANCH BLOCK RIGHT [None]
  - CARDIOACTIVE DRUG LEVEL INCREASED [None]
  - DEHYDRATION [None]
  - HAEMOGLOBIN DECREASED [None]
  - HYPERKALAEMIA [None]
  - INTERNATIONAL NORMALISED RATIO INCREASED [None]
  - MICROBIOLOGY TEST ABNORMAL [None]
  - RENAL CYST [None]
